FAERS Safety Report 20523002 (Version 2)
Quarter: 2022Q1

REPORT INFORMATION
  Report Type: Report from Study
  Country: US (occurrence: US)
  Receive Date: 20220227
  Receipt Date: 20220309
  Transmission Date: 20220423
  Serious: Yes (Hospitalization)
  Sender: FDA-Public Use
  Company Number: US-NOVARTISPH-NVSC2022US043099

PATIENT
  Age: 10 Year
  Sex: Male
  Weight: 24.5 kg

DRUGS (13)
  1. HYCAMTIN [Suspect]
     Active Substance: TOPOTECAN HYDROCHLORIDE
     Indication: Neuroblastoma
     Dosage: 0.69 MG CYCLICAL
     Route: 042
     Dates: start: 20211228
  2. CYCLOPHOSPHAMIDE [Suspect]
     Active Substance: CYCLOPHOSPHAMIDE
     Indication: Neuroblastoma
     Dosage: 230 MG
     Route: 042
     Dates: start: 20211228
  3. ACETAMINOPHEN [Concomitant]
     Active Substance: ACETAMINOPHEN
     Indication: Product used for unknown indication
     Dosage: UNK
     Route: 065
     Dates: start: 20220105
  4. ALBUTEROL [Concomitant]
     Active Substance: ALBUTEROL
     Indication: Product used for unknown indication
     Dosage: UNK
     Route: 065
     Dates: start: 20180730
  5. BECLOMETHASONE DIPROPIONATE [Concomitant]
     Active Substance: BECLOMETHASONE DIPROPIONATE
     Indication: Product used for unknown indication
     Dosage: UNK
     Route: 065
     Dates: start: 20180730
  6. CLARITIN [Concomitant]
     Active Substance: LORATADINE
     Indication: Product used for unknown indication
     Dosage: UNK
     Route: 065
     Dates: start: 20220105
  7. NYSTATIN [Concomitant]
     Active Substance: NYSTATIN
     Indication: Product used for unknown indication
     Dosage: UNK
     Route: 065
     Dates: start: 20211229
  8. OLANZAPINE [Concomitant]
     Active Substance: OLANZAPINE
     Indication: Product used for unknown indication
     Dosage: UNK
     Route: 065
     Dates: start: 20220105
  9. PENTAFLUOROPROPANE [Concomitant]
     Indication: Product used for unknown indication
     Dosage: UNK
     Route: 065
     Dates: start: 20220122
  10. MIRALAX [Concomitant]
     Active Substance: POLYETHYLENE GLYCOL 3350
     Indication: Product used for unknown indication
     Dosage: UNK
     Route: 065
     Dates: start: 20220110
  11. SENNOSIDES A AND B [Concomitant]
     Active Substance: SENNOSIDES A AND B
     Indication: Product used for unknown indication
     Dosage: UNK
     Route: 065
     Dates: start: 20220113
  12. COLACE [Concomitant]
     Active Substance: DOCUSATE SODIUM
     Indication: Product used for unknown indication
     Dosage: UNK
     Route: 065
     Dates: start: 20220114
  13. HEPARIN [Concomitant]
     Active Substance: HEPARIN SODIUM
     Indication: Product used for unknown indication
     Dosage: UNK
     Route: 065
     Dates: start: 20211220

REACTIONS (7)
  - Febrile neutropenia [Unknown]
  - Pyrexia [Recovered/Resolved]
  - Body temperature increased [Unknown]
  - Anaemia [Unknown]
  - Platelet count decreased [Unknown]
  - Neutrophil count decreased [Unknown]
  - White blood cell count decreased [Unknown]

NARRATIVE: CASE EVENT DATE: 20220206
